FAERS Safety Report 4330143-2 (Version None)
Quarter: 2004Q2

REPORT INFORMATION
  Report Type: 
  Country: None (occurrence: None)
  Receive Date: 20040402
  Receipt Date: 20040324
  Transmission Date: 20050107
  Serious: Yes (Hospitalization)
  Sender: FDA-Public Use
  Company Number: PHFR2004GB01529

PATIENT
  Sex: Female

DRUGS (1)
  1. FORADIL [Suspect]
     Route: 065

REACTIONS (2)
  - CHOKING [None]
  - INCREASED VISCOSITY OF BRONCHIAL SECRETION [None]
